FAERS Safety Report 16106926 (Version 1)
Quarter: 2019Q1

REPORT INFORMATION
  Report Type: Spontaneous
  Country: DK (occurrence: DK)
  Receive Date: 20190322
  Receipt Date: 20190322
  Transmission Date: 20190418
  Serious: Yes (Disabling)
  Sender: FDA-Public Use
  Company Number: DK-MYLANLABS-2019M1026344

PATIENT
  Age: 74 Year
  Sex: Male
  Weight: 70 kg

DRUGS (3)
  1. SILDENAFIL MYLAN [Suspect]
     Active Substance: SILDENAFIL CITRATE
     Indication: ERECTILE DYSFUNCTION
     Dosage: STYRKE: 50 MG DOSIS: 1 TABLET DAGLIG 1 TIME F?R VIRKNING ?NSKES
     Route: 048
     Dates: start: 20171016, end: 20180215
  2. LOSARTANKALIUM [Concomitant]
     Active Substance: LOSARTAN
     Indication: HYPERTENSION
     Dosage: STYRKE: 100 MG
     Route: 048
     Dates: start: 20130606
  3. BRICANYL [Concomitant]
     Active Substance: TERBUTALINE SULFATE
     Indication: ASTHMA
     Dosage: STYRKE: 0,5 MG/DOSIS DOSIS 1 SUG EFTER BEHOV VED ANFALD
     Route: 055
     Dates: start: 20160520

REACTIONS (6)
  - Ataxia [Recovering/Resolving]
  - Cerebrovascular accident [Recovered/Resolved with Sequelae]
  - Limb discomfort [Recovered/Resolved]
  - Gait disturbance [Recovering/Resolving]
  - Head discomfort [Recovering/Resolving]
  - Headache [Not Recovered/Not Resolved]

NARRATIVE: CASE EVENT DATE: 20180215
